FAERS Safety Report 4647138-1 (Version None)
Quarter: 2005Q2

REPORT INFORMATION
  Report Type: 
  Country: None (occurrence: None)
  Receive Date: 20050428
  Receipt Date: 20050419
  Transmission Date: 20051028
  Serious: Yes (Other)
  Sender: FDA-Public Use
  Company Number: US-JNJFOC-20050306491

PATIENT
  Sex: Female
  Weight: 68 kg

DRUGS (9)
  1. REMICADE [Suspect]
     Route: 042
  2. REMICADE [Suspect]
     Route: 042
  3. REMICADE [Suspect]
     Indication: RHEUMATOID ARTHRITIS
     Route: 042
  4. DYAZIDE [Concomitant]
  5. DYAZIDE [Concomitant]
     Indication: HYPERTENSION
  6. ACTENOL [Concomitant]
     Indication: OSTEOPOROSIS
  7. ALEVE [Concomitant]
  8. PREDNISONE [Concomitant]
  9. LIPITOR [Concomitant]

REACTIONS (9)
  - BODY TEMPERATURE INCREASED [None]
  - CYANOSIS [None]
  - DYSPNOEA [None]
  - FLUSHING [None]
  - INFUSION RELATED REACTION [None]
  - MEDICATION ERROR [None]
  - NAUSEA [None]
  - PRURITUS [None]
  - RALES [None]
